FAERS Safety Report 8792500 (Version 2)
Quarter: 2012Q4

REPORT INFORMATION
  Report Type: 
  Country: US (occurrence: US)
  Receive Date: 20120918
  Receipt Date: 20120926
  Transmission Date: 20130627
  Serious: Yes (Other)
  Sender: FDA-Public Use
  Company Number: CHPA2012US019984

PATIENT
  Age: 65 Year
  Sex: Female

DRUGS (2)
  1. VOLTAREN GEL [Suspect]
     Indication: ARTHRITIS
     Dosage: About 2 grams, TID
     Route: 061
     Dates: end: 20120917
  2. VOLTAREN GEL [Suspect]
     Dosage: Unk, Unk
     Route: 061
     Dates: start: 20120918

REACTIONS (3)
  - Vaginal haemorrhage [Not Recovered/Not Resolved]
  - Underdose [Unknown]
  - Wrong technique in drug usage process [Unknown]
